FAERS Safety Report 5220783-0 (Version None)
Quarter: 2007Q1

REPORT INFORMATION
  Report Type: 
  Country: None (occurrence: None)
  Receive Date: 20070126
  Receipt Date: 20070123
  Transmission Date: 20070707
  Serious: Yes (Other)
  Sender: FDA-Public Use
  Company Number: US-AVENTIS-200617401US

PATIENT
  Sex: Female
  Weight: 100 kg

DRUGS (17)
  1. LANTUS [Suspect]
  2. LANTUS [Suspect]
  3. DRUG USED IN DIABETES [Suspect]
     Dosage: DOSE: UNK
  4. NOVOLOG [Concomitant]
     Dosage: DOSE: SLIDING SCALE
  5. PLAVIX [Concomitant]
  6. ASPIRIN [Concomitant]
  7. NORTRIPTYLINE HCL [Concomitant]
     Dosage: DOSE: 1 CAP
  8. LOTREL [Concomitant]
     Dosage: DOSE: 5/20, 2 CAPS
  9. LASIX [Concomitant]
  10. LIPITOR [Concomitant]
  11. METOLAZONE [Concomitant]
  12. POTASSIUM CHLORIDE [Concomitant]
  13. NEXIUM [Concomitant]
  14. ACTOS [Concomitant]
  15. ZELNORM [Concomitant]
  16. ALEVE [Concomitant]
     Dosage: DOSE: 1-2 CAPS
  17. INSULIN NOS [Concomitant]
     Dates: start: 19960101

REACTIONS (15)
  - ABDOMINAL DISTENSION [None]
  - ANAEMIA [None]
  - BLOOD GLUCOSE DECREASED [None]
  - DENTAL CARIES [None]
  - DIABETIC RETINOPATHY [None]
  - DRY MOUTH [None]
  - DYSPEPSIA [None]
  - FLATULENCE [None]
  - GLYCOSYLATED HAEMOGLOBIN INCREASED [None]
  - HYPERGLYCAEMIA [None]
  - HYPOGLYCAEMIA [None]
  - NAUSEA [None]
  - OEDEMA [None]
  - RENAL FAILURE [None]
  - TOOTH DISORDER [None]
